FAERS Safety Report 8543435-8 (Version None)
Quarter: 2012Q3

REPORT INFORMATION
  Report Type: 
  Country: None (occurrence: None)
  Receive Date: 20120727
  Receipt Date: 20120723
  Transmission Date: 20120928
  Serious: Yes (Other)
  Sender: FDA-Public Use
  Company Number: PHHY2012BR063876

PATIENT
  Age: 79 Year
  Sex: Female

DRUGS (3)
  1. METFORMIN HCL [Suspect]
     Indication: DIABETES MELLITUS
     Dosage: 1 DF DAILY
  2. DIOVAN HCT [Suspect]
     Indication: HYPERTENSION
     Dosage: 1 DF PER DAY (VALS 160 MG AND HCTZ 25 MG)
  3. METFORMIN HCL [Suspect]
     Dosage: 1 DF, BID (1 TABLET IN MORNING AND 1 IN NIGHT)

REACTIONS (7)
  - DECREASED APPETITE [None]
  - WEIGHT DECREASED [None]
  - YELLOW SKIN [None]
  - SOMNOLENCE [None]
  - URTICARIA [None]
  - HEART RATE IRREGULAR [None]
  - EYE COLOUR CHANGE [None]
